FAERS Safety Report 19063906 (Version 1)
Quarter: 2021Q1

REPORT INFORMATION
  Report Type: Spontaneous
  Country: US (occurrence: US)
  Receive Date: 20210326
  Receipt Date: 20210326
  Transmission Date: 20210420
  Serious: No
  Sender: FDA-Public Use
  Company Number: US-ELI_LILLY_AND_COMPANY-US202103007685

PATIENT
  Sex: Female

DRUGS (1)
  1. BAMLANIVIMAB 700MG [Suspect]
     Active Substance: BAMLANIVIMAB
     Indication: COVID-19
     Dosage: 700 MG, SINGLE
     Route: 042
     Dates: start: 20210130, end: 20210130

REACTIONS (8)
  - Dizziness [Unknown]
  - Fatigue [Unknown]
  - Myalgia [Unknown]
  - Pneumonia [Unknown]
  - Nausea [Unknown]
  - Alopecia [Unknown]
  - Wheezing [Unknown]
  - Pruritus [Unknown]
